FAERS Safety Report 24666245 (Version 1)
Quarter: 2024Q4

REPORT INFORMATION
  Report Type: Spontaneous
  Country: FR (occurrence: FR)
  Receive Date: 20241126
  Receipt Date: 20241126
  Transmission Date: 20250115
  Serious: Yes (Hospitalization)
  Sender: CSL BEHRING
  Company Number: None

PATIENT
  Age: 15 Year
  Sex: Male
  Weight: 68 kg

DRUGS (3)
  1. CONFIDEX [Suspect]
     Active Substance: COAGULATION FACTOR IX HUMAN\COAGULATION FACTOR VII HUMAN\COAGULATION FACTOR X HUMAN\PROTEIN C\PROTEI
     Indication: Myocardial haemorrhage
     Dosage: UNK
     Route: 042
     Dates: start: 20240515, end: 20240515
  2. CONFIDEX [Suspect]
     Active Substance: COAGULATION FACTOR IX HUMAN\COAGULATION FACTOR VII HUMAN\COAGULATION FACTOR X HUMAN\PROTEIN C\PROTEI
     Indication: Myocardial haemorrhage
     Dosage: UNK
     Route: 042
     Dates: start: 20240515, end: 20240515
  3. CLOTTAFACT [Suspect]
     Active Substance: FIBRINOGEN HUMAN
     Indication: Myocardial haemorrhage
     Dosage: 1.5G/100ML
     Route: 042
     Dates: start: 20240515, end: 20240515

REACTIONS (1)
  - Anti-HLA antibody test positive [Recovering/Resolving]

NARRATIVE: CASE EVENT DATE: 20240906
